FAERS Safety Report 23263364 (Version 1)
Quarter: 2023Q4

REPORT INFORMATION
  Report Type: Spontaneous
  Country: US (occurrence: US)
  Receive Date: 20231205
  Receipt Date: 20231205
  Transmission Date: 20240110
  Serious: No
  Sender: FDA-Public Use
  Company Number: US-MYLANLABS-2023M1127355

PATIENT
  Sex: Male
  Weight: 89 kg

DRUGS (1)
  1. CELEBREX [Suspect]
     Active Substance: CELECOXIB
     Indication: Product used for unknown indication
     Dosage: 1 DOSAGE FORM, QD (TAKE 1 CAPSULE BY ORAL ROUTE EVERYDAY AS NEEDED)
     Route: 048

REACTIONS (1)
  - Off label use [Unknown]
